FAERS Safety Report 11044506 (Version 2)
Quarter: 2015Q2

REPORT INFORMATION
  Report Type: Report from Study
  Country: BR (occurrence: BR)
  Receive Date: 20150417
  Receipt Date: 20150519
  Transmission Date: 20150821
  Serious: Yes (Death, Hospitalization, Other)
  Sender: FDA-Public Use
  Company Number: BR-ABBVIE-15K-020-1376275-00

PATIENT
  Age: 57 Year
  Sex: Female
  Weight: 90 kg

DRUGS (3)
  1. LEFLUNOMIDE. [Concomitant]
     Active Substance: LEFLUNOMIDE
     Indication: PRODUCT USED FOR UNKNOWN INDICATION
  2. HUMIRA [Suspect]
     Active Substance: ADALIMUMAB
     Indication: RHEUMATOID ARTHRITIS
     Route: 058
     Dates: start: 20080109
  3. HUMIRA [Suspect]
     Active Substance: ADALIMUMAB
     Route: 058
     Dates: start: 20100531, end: 20141031

REACTIONS (12)
  - Renal cancer metastatic [Fatal]
  - Immunodeficiency [Fatal]
  - General physical health deterioration [Unknown]
  - Pyrexia [Unknown]
  - Cough [Not Recovered/Not Resolved]
  - Hyperglycaemia [Not Recovered/Not Resolved]
  - Neoplasm malignant [Fatal]
  - Hyperhidrosis [Not Recovered/Not Resolved]
  - Vomiting [Not Recovered/Not Resolved]
  - Thrombocytopenia [Not Recovered/Not Resolved]
  - Weight decreased [Unknown]
  - Hepatic cancer [Unknown]

NARRATIVE: CASE EVENT DATE: 201408
